FAERS Safety Report 5812138-2 (Version None)
Quarter: 2008Q3

REPORT INFORMATION
  Report Type: 
  Country: None (occurrence: None)
  Receive Date: 20080716
  Receipt Date: 20080708
  Transmission Date: 20090109
  Serious: Yes (Hospitalization)
  Sender: FDA-Public Use
  Company Number: GB-ABBOTT-08P-167-0461843-00

PATIENT
  Sex: Female
  Weight: 84 kg

DRUGS (7)
  1. HUMIRA [Suspect]
     Indication: RHEUMATOID ARTHRITIS
     Route: 058
     Dates: start: 20060921, end: 20070405
  2. GOLD [Concomitant]
     Indication: DRUG USE FOR UNKNOWN INDICATION
  3. AMITRIPTYLINE HCL [Concomitant]
     Indication: DRUG USE FOR UNKNOWN INDICATION
  4. COD-LIVER OIL [Concomitant]
     Indication: DRUG USE FOR UNKNOWN INDICATION
  5. ETODOLAC [Concomitant]
     Indication: DRUG USE FOR UNKNOWN INDICATION
  6. MULTI-VITAMINS [Concomitant]
     Indication: DRUG USE FOR UNKNOWN INDICATION
  7. ACETAMINOPHEN [Concomitant]
     Indication: DRUG USE FOR UNKNOWN INDICATION

REACTIONS (1)
  - JOINT EFFUSION [None]
